FAERS Safety Report 5817199-2 (Version None)
Quarter: 2008Q3

REPORT INFORMATION
  Report Type: 
  Country: None (occurrence: None)
  Receive Date: 20080722
  Receipt Date: 20080717
  Transmission Date: 20090109
  Serious: Yes (Hospitalization)
  Sender: FDA-Public Use
  Company Number: US-BRISTOL-MYERS SQUIBB COMPANY-14265912

PATIENT
  Age: 66 Year
  Sex: Male
  Weight: 83 kg

DRUGS (2)
  1. ERBITUX [Suspect]
     Indication: HEAD AND NECK CANCER
     Dosage: THERAPY STARTED ON6JUN08. DATE OF COURSE ASSOCIATED WITH REPORT 08JUL08. TOTAL NO. OF COURSES 6
     Route: 042
     Dates: start: 20080708, end: 20080708
  2. RADIATION THERAPY [Suspect]
     Indication: HEAD AND NECK CANCER
     Dosage: 6000 DF = 6000 GY. NUMBER OF FRACTIONS 30. NUMBER OF ELASPSED DAYS 36.
     Dates: start: 20080715, end: 20080715

REACTIONS (1)
  - THROMBOSIS [None]
